FAERS Safety Report 9772689 (Version 2)
Quarter: 2013Q4

REPORT INFORMATION
  Report Type: Spontaneous
  Country: DE (occurrence: DE)
  Receive Date: 20131219
  Receipt Date: 20131226
  Transmission Date: 20140711
  Serious: Yes (Other)
  Sender: FDA-Public Use
  Company Number: DE-GALDERMA-DE13004112

PATIENT
  Age: 59 Year
  Sex: Female

DRUGS (2)
  1. ORAYCEA [Suspect]
     Indication: ROSACEA
     Route: 048
     Dates: start: 20131121, end: 20131125
  2. AZATHIOPRIN [Concomitant]
     Indication: COLITIS ULCERATIVE

REACTIONS (2)
  - Colitis ulcerative [Recovered/Resolved]
  - Haematochezia [Recovered/Resolved]
